FAERS Safety Report 5024848-8 (Version None)
Quarter: 2006Q2

REPORT INFORMATION
  Report Type: 
  Country: None (occurrence: None)
  Receive Date: 20060607
  Receipt Date: 20060531
  Transmission Date: 20061013
  Serious: Yes (Death, Hospitalization)
  Sender: FDA-Public Use
  Company Number: HQWYE575531MAY06

PATIENT
  Sex: Female

DRUGS (4)
  1. TYGACIL [Suspect]
     Dates: start: 20060525, end: 20060527
  2. MEROPENEM (MEROPENEM,) [Suspect]
     Dates: start: 20060527, end: 20060501
  3. METRONIDAZOLE [Suspect]
     Dates: start: 20060527, end: 20060501
  4. AVELOX [Concomitant]

REACTIONS (2)
  - HEPATIC FUNCTION ABNORMAL [None]
  - MULTI-ORGAN FAILURE [None]
